FAERS Safety Report 18118503 (Version 4)
Quarter: 2020Q3

REPORT INFORMATION
  Report Type: Report from Study
  Country: US (occurrence: US)
  Receive Date: 20200806
  Receipt Date: 20200901
  Transmission Date: 20201103
  Serious: Yes (Congenital Anomaly, Other)
  Sender: FDA-Public Use
  Company Number: US-VIIV HEALTHCARE LIMITED-US2020GSK152152

PATIENT
  Sex: Female

DRUGS (4)
  1. DOLUTEGRAVIR [Suspect]
     Active Substance: DOLUTEGRAVIR
     Dosage: 1 DF (TABLET)
     Route: 064
     Dates: start: 20200310
  2. ISENTRESS [Suspect]
     Active Substance: RALTEGRAVIR POTASSIUM
     Indication: HIV INFECTION
     Dosage: 1 DF
     Route: 064
  3. DOLUTEGRAVIR [Suspect]
     Active Substance: DOLUTEGRAVIR
     Indication: HIV INFECTION
     Dosage: 1 DF (TABLET)
     Route: 064
  4. TRUVADA [Suspect]
     Active Substance: EMTRICITABINE\TENOFOVIR DISOPROXIL FUMARATE
     Indication: HIV INFECTION
     Dosage: 1 DF
     Route: 064

REACTIONS (3)
  - Ventricular septal defect [Unknown]
  - Foetal exposure during pregnancy [Unknown]
  - Premature baby [Unknown]
